FAERS Safety Report 8049406-2 (Version None)
Quarter: 2012Q1

REPORT INFORMATION
  Report Type: 
  Country: None (occurrence: None)
  Receive Date: 20120117
  Receipt Date: 20120109
  Transmission Date: 20120608
  Serious: Yes (Other)
  Sender: FDA-Public Use
  Company Number: CA-PFIZER INC-2011274114

PATIENT
  Age: 60 Year
  Sex: Female

DRUGS (3)
  1. AZOPT [Concomitant]
     Dosage: UNK, 2X/DAY
  2. XALATAN [Suspect]
     Indication: INTRAOCULAR PRESSURE INCREASED
  3. XALATAN [Suspect]
     Indication: GLAUCOMA
     Dosage: 1 GTT IN BOTH EYES AT BEDTIME
     Route: 047

REACTIONS (1)
  - INTRAOCULAR PRESSURE INCREASED [None]
